FAERS Safety Report 6505571-7 (Version None)
Quarter: 2009Q4

REPORT INFORMATION
  Report Type: 
  Country: None (occurrence: None)
  Receive Date: 20091217
  Receipt Date: 20091217
  Transmission Date: 20100525
  Serious: Yes (Hospitalization)
  Sender: FDA-Public Use
  Company Number: None

PATIENT
  Sex: Female
  Weight: 70.7611 kg

DRUGS (1)
  1. LODRANE 24 12MG CAP (BROMPHENIRAMINE) [Suspect]
     Indication: NASOPHARYNGITIS
     Dosage: 12 MG 1 A DAY
     Dates: start: 20091120, end: 20091124

REACTIONS (1)
  - AMNESIA [None]
